FAERS Safety Report 9805350 (Version 2)
Quarter: 2014Q1

REPORT INFORMATION
  Report Type: Spontaneous
  Country: GB (occurrence: GB)
  Receive Date: 20140109
  Receipt Date: 20140109
  Transmission Date: 20141002
  Serious: Yes (Other)
  Sender: FDA-Public Use
  Company Number: GB-JNJFOC-20131208639

PATIENT
  Age: 67 Year
  Sex: Female
  Weight: 52 kg

DRUGS (7)
  1. XARELTO [Suspect]
     Indication: CEREBROVASCULAR ACCIDENT PROPHYLAXIS
     Route: 065
     Dates: start: 201309
  2. XARELTO [Suspect]
     Indication: ATRIAL FIBRILLATION
     Route: 065
     Dates: start: 201309
  3. BISOPROLOL [Concomitant]
     Indication: ATRIAL FIBRILLATION
     Route: 048
     Dates: start: 201302
  4. CALCICHEW D3 FORTE [Concomitant]
     Indication: OSTEOPENIA
     Route: 048
  5. ISPAGHULA HUSK [Concomitant]
     Indication: CONSTIPATION
     Route: 048
  6. RAMIPRIL [Concomitant]
     Indication: HYPERTENSION
     Route: 048
  7. ALENDRONIC ACID [Concomitant]
     Indication: OSTEOPENIA
     Route: 048

REACTIONS (1)
  - Glomerular filtration rate decreased [Not Recovered/Not Resolved]
